FAERS Safety Report 7129630-3 (Version None)
Quarter: 2010Q4

REPORT INFORMATION
  Report Type: 
  Country: None (occurrence: None)
  Receive Date: 20101130
  Receipt Date: 20101119
  Transmission Date: 20110411
  Serious: Yes (Other)
  Sender: FDA-Public Use
  Company Number: KR-PFIZER INC-2010152751

PATIENT
  Sex: Male

DRUGS (1)
  1. VIAGRA [Suspect]
     Route: 048

REACTIONS (3)
  - EYE DISORDER [None]
  - OCULAR HYPERAEMIA [None]
  - PYREXIA [None]
